FAERS Safety Report 4353508-1 (Version None)
Quarter: 2004Q2

REPORT INFORMATION
  Report Type: 
  Country: None (occurrence: None)
  Receive Date: 20040430
  Receipt Date: 20040420
  Transmission Date: 20050107
  Serious: Yes (Other)
  Sender: FDA-Public Use
  Company Number: 2004027046

PATIENT
  Age: 41 Year
  Sex: Female
  Weight: 85.2762 kg

DRUGS (5)
  1. NEURONTIN [Suspect]
     Indication: BACK PAIN
     Dosage: 1200 MG TID, ORAL
     Route: 048
     Dates: start: 20010101
  2. CLONAZEPAM [Concomitant]
  3. TEMAZEPAM [Concomitant]
  4. PANTOPRAZOLE (PANTOPRAZOLE) [Concomitant]
  5. PROPRANOLOL HCL [Concomitant]

REACTIONS (3)
  - DRUG DEPENDENCE [None]
  - EUPHORIC MOOD [None]
  - MEDICATION ERROR [None]
